FAERS Safety Report 22265208 (Version 2)
Quarter: 2023Q2

REPORT INFORMATION
  Report Type: Spontaneous
  Country: US (occurrence: US)
  Receive Date: 20230428
  Receipt Date: 20230518
  Transmission Date: 20230721
  Serious: Yes (Other)
  Sender: FDA-Public Use
  Company Number: US-BAYER-2023A058609

PATIENT
  Age: 44 Year
  Sex: Male

DRUGS (2)
  1. JIVI [Suspect]
     Active Substance: DAMOCTOCOG ALFA PEGOL
     Dosage: 5240 IU
     Route: 042
  2. JIVI [Suspect]
     Active Substance: DAMOCTOCOG ALFA PEGOL
     Dosage: 5240 IU
     Route: 042
     Dates: start: 20230421, end: 20230421

REACTIONS (2)
  - Haemarthrosis [None]
  - Joint swelling [None]

NARRATIVE: CASE EVENT DATE: 20230309
